FAERS Safety Report 15134734 (Version 1)
Quarter: 2018Q3

REPORT INFORMATION
  Report Type: Spontaneous
  Country: US (occurrence: US)
  Receive Date: 20180712
  Receipt Date: 20180712
  Transmission Date: 20181010
  Serious: No
  Sender: FDA-Public Use
  Company Number: US-ELI_LILLY_AND_COMPANY-US201807005257

PATIENT
  Age: 26 Year
  Sex: Male

DRUGS (1)
  1. TALTZ [Suspect]
     Active Substance: IXEKIZUMAB
     Indication: PRODUCT USED FOR UNKNOWN INDICATION
     Dosage: 160 MG, SINGLE
     Route: 065
     Dates: start: 20180627

REACTIONS (6)
  - Diarrhoea [Recovering/Resolving]
  - Injection site reaction [Not Recovered/Not Resolved]
  - Nausea [Recovering/Resolving]
  - Decreased appetite [Recovering/Resolving]
  - Injection site warmth [Not Recovered/Not Resolved]
  - Injection site erythema [Not Recovered/Not Resolved]

NARRATIVE: CASE EVENT DATE: 20180627
